FAERS Safety Report 9612531 (Version 2)
Quarter: 2013Q4

REPORT INFORMATION
  Report Type: Report from Study
  Country: US (occurrence: US)
  Receive Date: 20131010
  Receipt Date: 20131101
  Transmission Date: 20140711
  Serious: Yes (Hospitalization, Other)
  Sender: FDA-Public Use
  Company Number: US-US-EMD SERONO, INC.-7241969

PATIENT
  Age: 51 Year
  Sex: Female

DRUGS (1)
  1. REBIF [Suspect]
     Indication: MULTIPLE SCLEROSIS
     Route: 058
     Dates: start: 20100405

REACTIONS (4)
  - Loss of consciousness [Recovered/Resolved]
  - Convulsion [Recovering/Resolving]
  - Gait disturbance [Recovering/Resolving]
  - Fatigue [Not Recovered/Not Resolved]
